FAERS Safety Report 5131255-6 (Version None)
Quarter: 2006Q4

REPORT INFORMATION
  Report Type: 
  Country: None (occurrence: None)
  Receive Date: 20061020
  Receipt Date: 20061010
  Transmission Date: 20070319
  Serious: Yes (Hospitalization)
  Sender: FDA-Public Use
  Company Number: 2006CG01648

PATIENT
  Age: 90 Year
  Sex: Female

DRUGS (2)
  1. ATACAND [Suspect]
     Route: 048
     Dates: end: 20060722
  2. ESIDRIX [Suspect]
     Route: 048

REACTIONS (4)
  - CONFUSIONAL STATE [None]
  - HYPERKALAEMIA [None]
  - HYPONATRAEMIA [None]
  - RENAL FAILURE [None]
